FAERS Safety Report 9352903 (Version 1)
Quarter: 2013Q2

REPORT INFORMATION
  Report Type: Spontaneous
  Country: DE (occurrence: DE)
  Receive Date: 20130618
  Receipt Date: 20130618
  Transmission Date: 20140414
  Serious: Yes (Other)
  Sender: FDA-Public Use
  Company Number: DE-ROCHE-1238080

PATIENT
  Age: 31 Year
  Sex: Female

DRUGS (1)
  1. LARIAM [Suspect]
     Indication: PROPHYLAXIS
     Route: 048

REACTIONS (3)
  - Tachycardia [Unknown]
  - Disorientation [Unknown]
  - Dizziness [Unknown]
